FAERS Safety Report 14783713 (Version 2)
Quarter: 2018Q2

REPORT INFORMATION
  Report Type: Spontaneous
  Country: TW (occurrence: TW)
  Receive Date: 20180420
  Receipt Date: 20180425
  Transmission Date: 20180711
  Serious: Yes (Other)
  Sender: FDA-Public Use
  Company Number: TW-UCBSA-2018016849

PATIENT
  Sex: Male

DRUGS (7)
  1. OXCARBAZEPINE. [Suspect]
     Active Substance: OXCARBAZEPINE
     Indication: PARTIAL SEIZURES
     Dosage: 20 MG/KG/DAY
     Route: 048
  2. VALPROATE [Suspect]
     Active Substance: VALPROIC ACID
     Indication: PARTIAL SEIZURES
     Dosage: 25 MG/KG/DAY
  3. LEVETIRACETAM. [Suspect]
     Active Substance: LEVETIRACETAM
     Indication: PARTIAL SEIZURES
     Dosage: 30 MG/KG/DAY
  4. ACTH [Suspect]
     Active Substance: CORTICOTROPIN
     Indication: PARTIAL SEIZURES
     Dosage: 2.5 U/KG/DOSE QD FOR 2 WEEKS
  5. PHENYTOIN. [Suspect]
     Active Substance: PHENYTOIN
     Indication: PARTIAL SEIZURES
     Dosage: 15 MG/KG/DAY
  6. ACTH [Suspect]
     Active Substance: CORTICOTROPIN
     Dosage: 2.5 U/KG/DOSE QOD FOR ANOTHER 2 WEEKS
  7. CLONAZEPAM. [Suspect]
     Active Substance: CLONAZEPAM
     Indication: PARTIAL SEIZURES
     Dosage: 0.1 MG/KG/DAY

REACTIONS (4)
  - Multiple-drug resistance [Unknown]
  - Infantile spasms [Recovered/Resolved]
  - Change in seizure presentation [Recovered/Resolved]
  - Tonic convulsion [Recovered/Resolved]
